FAERS Safety Report 7400896-5 (Version None)
Quarter: 2011Q2

REPORT INFORMATION
  Report Type: 
  Country: None (occurrence: None)
  Receive Date: 20110407
  Receipt Date: 20110405
  Transmission Date: 20111010
  Serious: Yes (Other)
  Sender: FDA-Public Use
  Company Number: US-BAYER-2011-029679

PATIENT
  Age: 34 Year
  Sex: Female

DRUGS (4)
  1. YAZ [Suspect]
     Dosage: UNK
     Dates: start: 20030529, end: 20030901
  2. YASMIN [Suspect]
     Dosage: UNK
     Dates: start: 20030529, end: 20030901
  3. YASMIN [Suspect]
     Dosage: UNK
     Dates: start: 20040401, end: 20050823
  4. YAZ [Suspect]
     Dosage: UNK
     Dates: start: 20040401, end: 20050823

REACTIONS (4)
  - PULMONARY EMBOLISM [None]
  - PAIN [None]
  - EMOTIONAL DISTRESS [None]
  - INJURY [None]
